FAERS Safety Report 5332675-7 (Version None)
Quarter: 2007Q2

REPORT INFORMATION
  Report Type: 
  Country: None (occurrence: None)
  Receive Date: 20070521
  Receipt Date: 20070511
  Transmission Date: 20071010
  Serious: Yes (Hospitalization, Other)
  Sender: FDA-Public Use
  Company Number: 2007BI004948

PATIENT
  Age: 47 Year
  Sex: Female
  Weight: 75 kg

DRUGS (5)
  1. AVONEX [Suspect]
     Indication: MULTIPLE SCLEROSIS
     Dosage: 30 UG; QW; IM
     Route: 030
     Dates: start: 20030702, end: 20061101
  2. AVONEX [Suspect]
     Indication: MULTIPLE SCLEROSIS
     Dosage: 30 UG; QW; IM
     Route: 030
     Dates: start: 20070101, end: 20070412
  3. METHYLPENIDATE [Concomitant]
  4. CLONAZEPAM [Concomitant]
  5. VENLAFAXINE HCL [Concomitant]

REACTIONS (15)
  - ABDOMINAL PAIN UPPER [None]
  - ARRHYTHMIA [None]
  - BREAST MASS [None]
  - CEREBRAL HAEMORRHAGE [None]
  - CEREBRAL ISCHAEMIA [None]
  - CONDITION AGGRAVATED [None]
  - DEPRESSION [None]
  - HEADACHE [None]
  - HYPOGLYCAEMIA [None]
  - INFLUENZA LIKE ILLNESS [None]
  - LIVER DISORDER [None]
  - MENINGIOMA [None]
  - MULTIPLE SCLEROSIS RELAPSE [None]
  - PAIN [None]
  - REFUSAL OF TREATMENT BY PATIENT [None]
